FAERS Safety Report 6502956-X (Version None)
Quarter: 2009Q4

REPORT INFORMATION
  Report Type: 
  Country: None (occurrence: None)
  Receive Date: 20091217
  Receipt Date: 20091207
  Transmission Date: 20100525
  Serious: Yes (Hospitalization)
  Sender: FDA-Public Use
  Company Number: PHEH2009US14171

PATIENT
  Sex: Female

DRUGS (18)
  1. TASIGNA [Suspect]
     Indication: CHRONIC MYELOID LEUKAEMIA
     Dosage: 200 MG, BID
     Route: 048
     Dates: start: 20091001
  2. TASIGNA [Suspect]
     Dosage: 200 MG, BID
     Route: 048
  3. BONIVA [Concomitant]
  4. NITROGLYCERIN [Concomitant]
     Dosage: 0.2 MG, UNK
  5. LOPRESSOR [Concomitant]
     Dosage: 25 MG, UNK
  6. ACIPHEX [Concomitant]
  7. CLARINEX                                /USA/ [Concomitant]
  8. LAMISIL                            /00992601/ [Concomitant]
  9. HYDROCODONE BITARTRATE AND ACETAMINOPHEN [Concomitant]
  10. FUROSEMIDE [Concomitant]
  11. PROPYLTHIOURACIL TAB [Concomitant]
  12. SPIRONOLACTONE [Concomitant]
  13. CIPRO [Concomitant]
  14. NEURONTIN [Concomitant]
  15. OXYBUTYNIN CHLORIDE [Concomitant]
  16. PREDNISONE [Concomitant]
  17. NORFLEX [Concomitant]
  18. LYRICA [Concomitant]

REACTIONS (9)
  - BURNING SENSATION [None]
  - CHEST PAIN [None]
  - COMPLEX REGIONAL PAIN SYNDROME [None]
  - ERYTHEMA [None]
  - EYE SWELLING [None]
  - HAEMOGLOBIN DECREASED [None]
  - MEDICATION ERROR [None]
  - OEDEMA PERIPHERAL [None]
  - PAIN [None]
